FAERS Safety Report 24718892 (Version 1)
Quarter: 2024Q4

REPORT INFORMATION
  Report Type: Spontaneous
  Country: US (occurrence: None)
  Receive Date: 20241210
  Receipt Date: 20241210
  Transmission Date: 20250115
  Serious: No
  Sender: Public
  Company Number: None

PATIENT
  Age: 71 Year
  Sex: Female

DRUGS (4)
  1. RYBELSUS [Suspect]
     Active Substance: SEMAGLUTIDE
     Indication: Type 2 diabetes mellitus
     Dosage: FREQUENCY : DAILY;?
     Route: 048
     Dates: start: 20241101, end: 20241122
  2. BUPROPION [Concomitant]
     Active Substance: BUPROPION
     Dates: start: 20181201
  3. ATORVASTATIN [Concomitant]
     Active Substance: ATORVASTATIN
     Dates: start: 20241201
  4. Estradiol 0.01% vaginal cream [Concomitant]
     Dates: start: 20241201

REACTIONS (3)
  - Abdominal discomfort [None]
  - Product after taste [None]
  - Dysgeusia [None]

NARRATIVE: CASE EVENT DATE: 20241122
